FAERS Safety Report 26158983 (Version 1)
Quarter: 2025Q4

REPORT INFORMATION
  Report Type: Report from Study
  Country: US (occurrence: US)
  Receive Date: 20251215
  Receipt Date: 20251215
  Transmission Date: 20260118
  Serious: Yes (Other)
  Sender: ABBVIE
  Company Number: US-ABBVIE-6587399

PATIENT
  Age: 53 Year
  Sex: Male

DRUGS (1)
  1. HUMIRA [Suspect]
     Active Substance: ADALIMUMAB
     Indication: Product used for unknown indication
     Dosage: 40MG/0.4ML, DOSE FORM: SOLUTION FOR INJECTION IN PRE-FILLED PEN, CITRATE FREE
     Route: 058
     Dates: start: 2020, end: 202508

REACTIONS (2)
  - Neoplasm malignant [Unknown]
  - Intestinal resection [Unknown]

NARRATIVE: CASE EVENT DATE: 20250801
